FAERS Safety Report 5455556-7 (Version None)
Quarter: 2007Q3

REPORT INFORMATION
  Report Type: 
  Country: None (occurrence: None)
  Receive Date: 20070914
  Receipt Date: 20070905
  Transmission Date: 20080115
  Serious: Yes (Other)
  Sender: FDA-Public Use
  Company Number: 07-001822

PATIENT
  Age: 28 Year
  Sex: Female
  Weight: 61.7 kg

DRUGS (1)
  1. LOESTRIN 24 FE [Suspect]
     Indication: CONTRACEPTION
     Dosage: 20/1000 UG, QD, ORAL
     Route: 048
     Dates: start: 20070401

REACTIONS (3)
  - PRURITUS GENERALISED [None]
  - RASH GENERALISED [None]
  - SKIN BURNING SENSATION [None]
